FAERS Safety Report 7485233-2 (Version None)
Quarter: 2011Q2

REPORT INFORMATION
  Report Type: 
  Country: None (occurrence: None)
  Receive Date: 20110517
  Receipt Date: 20110510
  Transmission Date: 20111010
  Serious: Yes (Death)
  Sender: FDA-Public Use
  Company Number: DE-ROCHE-776745

PATIENT
  Sex: Female
  Weight: 38 kg

DRUGS (5)
  1. LAPATINIB [Suspect]
     Indication: BREAST CANCER
     Dosage: 3RD CYCLE COMPLETED
     Route: 048
  2. METOPROLOL TARTRATE [Concomitant]
  3. FEMARA [Concomitant]
  4. CAPECITABINE [Suspect]
     Indication: BREAST CANCER
     Dosage: 3RD CYCLE COMPLETED
     Route: 048
     Dates: end: 20110430
  5. BISPHOSPHONATES [Concomitant]
     Dates: start: 20100801

REACTIONS (1)
  - DEATH [None]
